FAERS Safety Report 8835830 (Version 2)
Quarter: 2012Q4

REPORT INFORMATION
  Report Type: 
  Country: FR (occurrence: FR)
  Receive Date: 20121011
  Receipt Date: 20121206
  Transmission Date: 20130627
  Serious: Yes (Other)
  Sender: FDA-Public Use
  Company Number: FR-GLAXOSMITHKLINE-B0836280A

PATIENT
  Age: 7 Month
  Weight: 8.8 kg

DRUGS (1)
  1. CLAVENTIN [Suspect]
     Indication: PROPHYLAXIS
     Dosage: 3G Single dose
     Route: 042
     Dates: start: 20121008, end: 20121008

REACTIONS (3)
  - Accidental overdose [Unknown]
  - Medication error [Unknown]
  - No adverse event [Unknown]
